FAERS Safety Report 9467761 (Version 3)
Quarter: 2013Q4

REPORT INFORMATION
  Report Type: Spontaneous
  Country: US (occurrence: US)
  Receive Date: 20130821
  Receipt Date: 20131010
  Transmission Date: 20140711
  Serious: Yes (Hospitalization, Other)
  Sender: FDA-Public Use
  Company Number: US-MYLANLABS-2013S1018063

PATIENT
  Age: 66 Year
  Sex: Female
  Weight: 86.18 kg

DRUGS (16)
  1. TIZANIDINE HYDROCHLORIDE TABLETS [Suspect]
     Indication: FIBROMYALGIA
     Route: 048
     Dates: start: 20130214, end: 20130613
  2. TIZANIDINE HYDROCHLORIDE TABLETS [Suspect]
     Indication: OFF LABEL USE
     Route: 048
     Dates: start: 20130214, end: 20130613
  3. TIZANIDINE HYDROCHLORIDE TABLETS [Suspect]
     Indication: MYALGIA
     Route: 048
     Dates: start: 20130214, end: 20130613
  4. LOTREL [Concomitant]
     Dosage: 5/10MG
     Route: 048
  5. SYNTHROID [Concomitant]
     Route: 048
  6. NEURONTIN [Concomitant]
     Route: 048
  7. PLAQUENIL [Concomitant]
     Route: 048
  8. CALCIUM CARBONATE [Concomitant]
     Route: 048
  9. VITAMIN D [Concomitant]
     Dosage: DOSE = 400 (UNITS UNKNOWN)
  10. FOLIC ACID [Concomitant]
     Route: 048
  11. TENORMIN [Concomitant]
     Route: 048
  12. TYLENOL EXTRA STRENGTH [Concomitant]
  13. PEPCID [Concomitant]
     Dosage: PRN
     Route: 048
  14. IMODIUM [Concomitant]
     Route: 048
  15. LASIX [Concomitant]
     Route: 048
  16. PROAIR HFA [Concomitant]
     Dosage: 1-2 PUFFS EVERY 4-6 HOURS AS NEEDED

REACTIONS (9)
  - Pulmonary embolism [Recovered/Resolved]
  - Deep vein thrombosis [Recovered/Resolved]
  - Arrhythmia [Recovered/Resolved]
  - Nephrolithiasis [Recovered/Resolved]
  - Urinary retention [Recovered/Resolved]
  - Vomiting [Recovered/Resolved]
  - Activities of daily living impaired [Not Recovered/Not Resolved]
  - Pain [Not Recovered/Not Resolved]
  - Asthenia [Not Recovered/Not Resolved]
